FAERS Safety Report 19213207 (Version 2)
Quarter: 2021Q2

REPORT INFORMATION
  Report Type: Spontaneous
  Country: US (occurrence: US)
  Receive Date: 20210504
  Receipt Date: 20210517
  Transmission Date: 20210717
  Serious: No
  Sender: FDA-Public Use
  Company Number: US-AMGEN-USASP2021066606

PATIENT
  Age: 41 Year
  Sex: Female

DRUGS (3)
  1. ESTARYLLA [Concomitant]
     Active Substance: ETHINYL ESTRADIOL\NORGESTIMATE
  2. OTEZLA [Suspect]
     Active Substance: APREMILAST
     Indication: PSORIASIS
     Dosage: 30 MILLIGRAM, QD
     Route: 048
  3. BIOTIN [Concomitant]
     Active Substance: BIOTIN

REACTIONS (4)
  - Vomiting [Unknown]
  - Headache [Unknown]
  - Treatment failure [Unknown]
  - Nausea [Unknown]
